FAERS Safety Report 7081737-5 (Version None)
Quarter: 2010Q4

REPORT INFORMATION
  Report Type: 
  Country: None (occurrence: None)
  Receive Date: 20101103
  Receipt Date: 20101025
  Transmission Date: 20110411
  Serious: Yes (Other)
  Sender: FDA-Public Use
  Company Number: US-ELI_LILLY_AND_COMPANY-US200910005427

PATIENT
  Sex: Female
  Weight: 67.574 kg

DRUGS (9)
  1. BYETTA [Suspect]
     Dosage: UNK, UNKNOWN
     Route: 065
     Dates: start: 20060828, end: 20070829
  2. INSULIN [Concomitant]
     Indication: DIABETES MELLITUS
  3. STATIN                             /00084401/ [Concomitant]
     Indication: BLOOD CHOLESTEROL INCREASED
  4. LEVBID [Concomitant]
     Indication: ABDOMINAL PAIN
     Dosage: UNK, AS NEEDED
  5. PIOGLITAZONE [Concomitant]
  6. LASIX [Concomitant]
  7. DIOVAN [Concomitant]
     Dosage: 160 MG, DAILY (1/D)
  8. POTASSIUM CHLORIDE [Concomitant]
  9. NORVASC [Concomitant]

REACTIONS (2)
  - OFF LABEL USE [None]
  - RENAL FAILURE [None]
